FAERS Safety Report 9393530 (Version 1)
Quarter: 2013Q3

REPORT INFORMATION
  Report Type: Spontaneous
  Country: FR (occurrence: FR)
  Receive Date: 20130710
  Receipt Date: 20130710
  Transmission Date: 20140515
  Serious: Yes (Life-Threatening, Hospitalization)
  Sender: FDA-Public Use
  Company Number: FR-BRISTOL-MYERS SQUIBB COMPANY-19071745

PATIENT
  Age: 31 Year
  Sex: Female

DRUGS (3)
  1. ZERIT [Suspect]
     Dates: start: 20130515, end: 20130519
  2. ISENTRESS [Suspect]
     Dosage: TABS
     Dates: start: 20130515, end: 20130519
  3. KALETRA TABLETS 200MG/50MG [Suspect]
     Dates: start: 20130515, end: 20130519

REACTIONS (6)
  - Grand mal convulsion [Recovered/Resolved]
  - Anaemia [Unknown]
  - Renal failure [Unknown]
  - Kaposi^s sarcoma [Unknown]
  - Opportunistic infection [Unknown]
  - Depression [Unknown]
